FAERS Safety Report 5733008-4 (Version None)
Quarter: 2008Q2

REPORT INFORMATION
  Report Type: 
  Country: None (occurrence: None)
  Receive Date: 20080509
  Receipt Date: 20080430
  Transmission Date: 20081010
  Serious: Yes (Other)
  Sender: FDA-Public Use
  Company Number: US-JNJFOC-20080105088

PATIENT
  Sex: Female
  Weight: 79.38 kg

DRUGS (2)
  1. TOPAMAX [Suspect]
     Indication: MIGRAINE PROPHYLAXIS
     Route: 048
  2. CYMBALTA [Concomitant]
     Route: 048

REACTIONS (3)
  - ANGLE CLOSURE GLAUCOMA [None]
  - IRIDOCYCLITIS [None]
  - VISION BLURRED [None]
